FAERS Safety Report 5429874-2 (Version None)
Quarter: 2007Q3

REPORT INFORMATION
  Report Type: 
  Country: None (occurrence: None)
  Receive Date: 20070829
  Receipt Date: 20070815
  Transmission Date: 20080115
  Serious: Yes (Other)
  Sender: FDA-Public Use
  Company Number: US-PFIZER INC-2007043211

PATIENT

DRUGS (2)
  1. CELEBREX [Suspect]
     Indication: FACIAL PALSY
  2. CELEBREX [Suspect]
     Indication: ARTHRITIS

REACTIONS (3)
  - CARDIOVASCULAR DISORDER [None]
  - DYSMORPHISM [None]
  - EYE DISORDER [None]
